FAERS Safety Report 6960643-8 (Version None)
Quarter: 2010Q3

REPORT INFORMATION
  Report Type: 
  Country: None (occurrence: None)
  Receive Date: 20100901
  Receipt Date: 20100820
  Transmission Date: 20110219
  Serious: Yes (Other)
  Sender: FDA-Public Use
  Company Number: US-PFIZER INC-2010105371

PATIENT
  Sex: Female
  Weight: 91 kg

DRUGS (8)
  1. CHANTIX [Suspect]
     Indication: SMOKING CESSATION THERAPY
     Dosage: UNK
     Route: 048
     Dates: start: 20100601, end: 20100809
  2. CHANTIX [Suspect]
     Dosage: UNK
     Route: 048
     Dates: start: 20100815
  3. CYMBALTA [Concomitant]
     Indication: DEPRESSION
     Dosage: 60 MG, 1X/DAY
     Route: 048
  4. CYMBALTA [Concomitant]
     Indication: MYALGIA
  5. PRAVASTATIN [Concomitant]
     Indication: BLOOD CHOLESTEROL INCREASED
     Dosage: 40 MG, 1X/DAY
  6. DEPAKOTE [Concomitant]
     Indication: TIC
     Dosage: 500 MG, 1X/DAY
     Route: 048
  7. ABILIFY [Concomitant]
     Indication: BIPOLAR DISORDER
     Dosage: 20 MG, 1X/DAY
  8. ZYRTEC [Concomitant]
     Indication: MULTIPLE ALLERGIES
     Dosage: 10 MG, 1X/DAY

REACTIONS (1)
  - CONTUSION [None]
